FAERS Safety Report 6273859-3 (Version None)
Quarter: 2009Q3

REPORT INFORMATION
  Report Type: 
  Country: None (occurrence: None)
  Receive Date: 20090716
  Receipt Date: 20090702
  Transmission Date: 20100115
  Serious: Yes (Other)
  Sender: FDA-Public Use
  Company Number: 2009CD0133FU1

PATIENT
  Age: 4 Year
  Sex: Male

DRUGS (1)
  1. CEDAX [Suspect]
     Indication: RESPIRATORY TRACT INFECTION
     Dosage: 153MG GRANULES
     Dates: start: 20081015, end: 20081015

REACTIONS (1)
  - LIP OEDEMA [None]
